FAERS Safety Report 4422143-9 (Version None)
Quarter: 2004Q3

REPORT INFORMATION
  Report Type: 
  Country: None (occurrence: None)
  Receive Date: 20040805
  Receipt Date: 20040728
  Transmission Date: 20050211
  Serious: Yes (Disabling)
  Sender: FDA-Public Use
  Company Number: HQWYE002013FEB04

PATIENT
  Age: 48 Year
  Sex: Female

DRUGS (3)
  1. DIMETAPP [Suspect]
     Dosage: ORAL
     Route: 048
     Dates: start: 19920729, end: 19920802
  2. ALKA-SELTZER PLUS COLD (ACETYLSALICYLIC ACID/CHLORPHENAMINE MALEATE/PH [Suspect]
     Dosage: ORAL
     Route: 048
     Dates: start: 19920729, end: 19920802
  3. TRIAMINIC SRT [Suspect]
     Dosage: ORAL
     Route: 048
     Dates: start: 19920729, end: 19920802

REACTIONS (1)
  - CEREBROVASCULAR ACCIDENT [None]
